FAERS Safety Report 4643735-8 (Version None)
Quarter: 2005Q2

REPORT INFORMATION
  Report Type: 
  Country: None (occurrence: None)
  Receive Date: 20050425
  Receipt Date: 20050415
  Transmission Date: 20051028
  Serious: Yes (Other)
  Sender: FDA-Public Use
  Company Number: 200513328GDDC

PATIENT
  Age: 50 Year
  Sex: Female

DRUGS (1)
  1. METRONIDAZOLE [Suspect]
     Indication: ORAL INFECTION
     Route: 048
     Dates: start: 20050324, end: 20050326

REACTIONS (5)
  - CHEST DISCOMFORT [None]
  - EAR PAIN [None]
  - FEELING HOT [None]
  - FURUNCLE [None]
  - RASH [None]
